FAERS Safety Report 8165502-3 (Version None)
Quarter: 2012Q1

REPORT INFORMATION
  Report Type: 
  Country: None (occurrence: None)
  Receive Date: 20120227
  Receipt Date: 20120216
  Transmission Date: 20120608
  Serious: Yes (Other)
  Sender: FDA-Public Use
  Company Number: US-BAYER-2011-069882

PATIENT
  Age: 19 Year
  Sex: Female
  Weight: 62.132 kg

DRUGS (6)
  1. DEPO-PROVERA [Concomitant]
  2. EFFEXOR [Concomitant]
  3. YAZ [Suspect]
     Indication: PRODUCT USED FOR UNKNOWN INDICATION
     Dosage: UNK
     Dates: start: 20080101
  4. VICODIN [Concomitant]
  5. PROVIGIL [Concomitant]
  6. ATIVAN [Concomitant]

REACTIONS (6)
  - CHOLELITHIASIS [None]
  - BILIARY COLIC [None]
  - GALLBLADDER INJURY [None]
  - INJURY [None]
  - FEAR [None]
  - PAIN [None]
